FAERS Safety Report 9963601 (Version 1)
Quarter: 2014Q1

REPORT INFORMATION
  Report Type: Report from Study
  Country: US (occurrence: US)
  Receive Date: 20140305
  Receipt Date: 20140305
  Transmission Date: 20141002
  Serious: No
  Sender: FDA-Public Use
  Company Number: US-ABBVIE-13P-163-1118607-00

PATIENT
  Sex: Female

DRUGS (1)
  1. HUMIRA [Suspect]
     Indication: CROHN^S DISEASE
     Dosage: 40 MG (0.8 ML) EVERY TWO WEEKS
     Route: 058
     Dates: start: 201206

REACTIONS (4)
  - Circumstance or information capable of leading to medication error [Unknown]
  - Drug dispensing error [Unknown]
  - Injection site pain [Unknown]
  - Injection site bruising [Unknown]
